FAERS Safety Report 13771077 (Version 1)
Quarter: 2017Q3

REPORT INFORMATION
  Report Type: Spontaneous
  Country: US (occurrence: US)
  Receive Date: 20170720
  Receipt Date: 20170720
  Transmission Date: 20171127
  Serious: Yes (Hospitalization)
  Sender: FDA-Public Use
  Company Number: US-TEVA-778412USA

PATIENT
  Sex: Female
  Weight: 98.7 kg

DRUGS (17)
  1. LISINOPRIL. [Suspect]
     Active Substance: LISINOPRIL
     Indication: PRODUCT USED FOR UNKNOWN INDICATION
     Dosage: 20 MILLIGRAM DAILY;
     Route: 065
  2. CARBOPLATIN. [Concomitant]
     Active Substance: CARBOPLATIN
     Indication: LUNG ADENOCARCINOMA
     Dosage: AUC 6, INTRAVENOUS
     Route: 042
     Dates: start: 20170207
  3. MULTIVITAMIN [Concomitant]
     Active Substance: VITAMINS
  4. CIPROFLOXACIN. [Concomitant]
     Active Substance: CIPROFLOXACIN
  5. ESCITALOPRAM OXALATE. [Concomitant]
     Active Substance: ESCITALOPRAM OXALATE
  6. DIFLUCAN [Concomitant]
     Active Substance: FLUCONAZOLE
  7. SIMVASTATIN. [Concomitant]
     Active Substance: SIMVASTATIN
  8. CALCIUM [Concomitant]
     Active Substance: CALCIUM
  9. SENOKOT [Concomitant]
     Active Substance: SENNOSIDES
  10. ASPIRIN. [Concomitant]
     Active Substance: ASPIRIN
  11. OSTEO BI-FLEX [Concomitant]
     Active Substance: CHONDROITIN SULFATE A\GLUCOSAMINE
  12. RESTORIL [Concomitant]
     Active Substance: TEMAZEPAM
  13. PACLITAXEL. [Concomitant]
     Active Substance: PACLITAXEL
     Indication: LUNG ADENOCARCINOMA
     Dosage: 200 MG/M2, UNK, INTRAVENOUS
     Route: 042
     Dates: start: 20170207
  14. REGN2810 [Concomitant]
     Indication: LUNG ADENOCARCINOMA
     Dosage: 3MG/KG, UNK, INTRAVENOUS
     Route: 042
     Dates: start: 20170207
  15. PANTOPRAZOLE [Concomitant]
     Active Substance: PANTOPRAZOLE
  16. MORPHINE SULFATE. [Concomitant]
     Active Substance: MORPHINE SULFATE
  17. OXYCODONE [Concomitant]
     Active Substance: OXYCODONE

REACTIONS (1)
  - Hypotension [Recovered/Resolved]

NARRATIVE: CASE EVENT DATE: 20170216
